FAERS Safety Report 9803509 (Version 1)
Quarter: 2014Q1

REPORT INFORMATION
  Report Type: Spontaneous
  Country: US (occurrence: US)
  Receive Date: 20140108
  Receipt Date: 20140108
  Transmission Date: 20141002
  Serious: No
  Sender: FDA-Public Use
  Company Number: US-GLAXOSMITHKLINE-A1001289A

PATIENT
  Age: 54 Year
  Sex: Male

DRUGS (8)
  1. LOVAZA [Suspect]
     Indication: BLOOD TRIGLYCERIDES INCREASED
     Dosage: 8G PER DAY
     Route: 048
     Dates: start: 201203
  2. CARDURA [Concomitant]
  3. ATENOLOL [Concomitant]
  4. LISINOPRIL [Concomitant]
  5. OMEPRAZOLE [Concomitant]
  6. AMBIEN [Concomitant]
  7. SEROQUEL [Concomitant]
  8. CLONAZEPAM [Concomitant]

REACTIONS (2)
  - Drug administration error [Unknown]
  - Therapeutic response unexpected [Unknown]
